FAERS Safety Report 23701209 (Version 1)
Quarter: 2024Q2

REPORT INFORMATION
  Report Type: Spontaneous
  Country: CN (occurrence: CN)
  Receive Date: 20240403
  Receipt Date: 20240403
  Transmission Date: 20240716
  Serious: Yes (Hospitalization, Other)
  Sender: FDA-Public Use
  Company Number: CN-MLMSERVICE-20240320-4890667-2

PATIENT
  Age: 43 Year
  Sex: Male

DRUGS (18)
  1. TACROLIMUS [Suspect]
     Active Substance: TACROLIMUS
     Indication: Immunosuppressant drug therapy
     Dates: start: 201811, end: 202110
  2. RITUXIMAB [Suspect]
     Active Substance: RITUXIMAB
     Indication: Diffuse large B-cell lymphoma
     Dosage: 700 MG, REDUCED DOSE, Q3W
     Dates: start: 202110
  3. SIROLIMUS [Suspect]
     Active Substance: SIROLIMUS
     Indication: Lymphoma
     Dosage: 0.3 TABLETS PER DAY
     Dates: start: 202110
  4. PREDNISONE ACETATE [Suspect]
     Active Substance: PREDNISONE ACETATE
     Indication: Immunosuppressant drug therapy
     Route: 048
     Dates: start: 201811, end: 202204
  5. IBRUTINIB [Suspect]
     Active Substance: IBRUTINIB
     Indication: Lymphoma
     Dates: start: 202110
  6. PREDNISONE [Suspect]
     Active Substance: PREDNISONE
     Indication: Diffuse large B-cell lymphoma
     Dosage: 100 MG, REDUCED DOSE, Q3W
     Dates: start: 202110
  7. VINCRISTINE [Suspect]
     Active Substance: VINCRISTINE
     Indication: Lymphoma
     Dosage: 2 MG, REDUCED DOSE, Q3W
     Dates: start: 202110
  8. EPIRUBICIN [Suspect]
     Active Substance: EPIRUBICIN
     Indication: Diffuse large B-cell lymphoma
     Dosage: 110 MG, REDUCED DOSE, Q3W
     Dates: start: 202110
  9. CELLCEPT [Suspect]
     Active Substance: MYCOPHENOLATE MOFETIL
     Indication: Immunosuppressant drug therapy
     Dates: start: 201811, end: 202204
  10. CYCLOPHOSPHAMIDE [Suspect]
     Active Substance: CYCLOPHOSPHAMIDE
     Indication: Diffuse large B-cell lymphoma
     Dosage: 1100 MG, REDUCED DOSE, Q3W
     Dates: start: 202110
  11. SIROLIMUS [Suspect]
     Active Substance: SIROLIMUS
     Indication: Diffuse large B-cell lymphoma
     Dosage: 0.3 TABLETS PER DAY
     Dates: start: 202110
  12. CYCLOPHOSPHAMIDE [Suspect]
     Active Substance: CYCLOPHOSPHAMIDE
     Indication: Lymphoma
     Dosage: 1100 MG, REDUCED DOSE, Q3W
     Dates: start: 202110
  13. RITUXIMAB [Suspect]
     Active Substance: RITUXIMAB
     Indication: Lymphoma
     Dosage: 700 MG, REDUCED DOSE, Q3W
     Dates: start: 202110
  14. TACROLIMUS [Suspect]
     Active Substance: TACROLIMUS
     Indication: Immunosuppressant drug therapy
     Dosage: REDUCED TO 0.5 MG PER DAY
     Dates: start: 202110
  15. IBRUTINIB [Suspect]
     Active Substance: IBRUTINIB
     Indication: Diffuse large B-cell lymphoma
     Dates: start: 202110
  16. PREDNISONE [Suspect]
     Active Substance: PREDNISONE
     Indication: Lymphoma
     Dosage: 100 MG, REDUCED DOSE, Q3W
     Dates: start: 202110
  17. VINCRISTINE [Suspect]
     Active Substance: VINCRISTINE
     Indication: Diffuse large B-cell lymphoma
     Dosage: 2 MG, REDUCED DOSE, Q3W
     Dates: start: 202110
  18. EPIRUBICIN [Suspect]
     Active Substance: EPIRUBICIN
     Indication: Lymphoma
     Dosage: 110 MG, REDUCED DOSE, Q3W
     Dates: start: 202110

REACTIONS (4)
  - Aspergillus infection [Recovered/Resolved]
  - Immunosuppressant drug level increased [Recovered/Resolved]
  - Granuloma [Recovered/Resolved]
  - Tracheobronchitis [Recovered/Resolved]

NARRATIVE: CASE EVENT DATE: 20220101
